FAERS Safety Report 5098416-6 (Version None)
Quarter: 2006Q3

REPORT INFORMATION
  Report Type: 
  Country: None (occurrence: None)
  Receive Date: 20060906
  Receipt Date: 20060113
  Transmission Date: 20061208
  Serious: No
  Sender: FDA-Public Use
  Company Number: US-GLAXOSMITHKLINE-A0589221A

PATIENT
  Age: 92 Year
  Sex: Male

DRUGS (3)
  1. REQUIP [Suspect]
     Indication: PARKINSON'S DISEASE
     Route: 048
     Dates: start: 20051223, end: 20051225
  2. SINEMET [Concomitant]
  3. FLOMAX [Concomitant]

REACTIONS (2)
  - DIARRHOEA [None]
  - NAUSEA [None]
